FAERS Safety Report 4484341-8 (Version None)
Quarter: 2004Q4

REPORT INFORMATION
  Report Type: 
  Country: None (occurrence: None)
  Receive Date: 20041021
  Receipt Date: 20041006
  Transmission Date: 20050328
  Serious: Yes (Death)
  Sender: FDA-Public Use
  Company Number: 2004AL000704

PATIENT
  Age: 15 Year

DRUGS (5)
  1. IBUPROFEN [Suspect]
     Dosage: PO
     Route: 048
  2. IBUPROFEN [Suspect]
     Dosage: PO
     Route: 048
  3. CHILDREN'S APAP ELIXIR (ACETAMINOPHEN) [Suspect]
     Dosage: PO
     Route: 048
  4. INFANT'S APAP DROPS (ACETAMINOPHEN) [Suspect]
     Dosage: PO
     Route: 048
  5. NORTRIPTYLINE HCL [Suspect]
     Dosage: PO
     Route: 048

REACTIONS (2)
  - MULTIPLE DRUG OVERDOSE INTENTIONAL [None]
  - SUICIDE ATTEMPT [None]
